FAERS Safety Report 9089146 (Version 1)
Quarter: 2013Q1

REPORT INFORMATION
  Report Type: Spontaneous
  Country: TR (occurrence: TR)
  Receive Date: 20130201
  Receipt Date: 20130201
  Transmission Date: 20140127
  Serious: Yes (Other)
  Sender: FDA-Public Use
  Company Number: TR-ACCORD-016215

PATIENT
  Age: 31 Year
  Sex: Female

DRUGS (2)
  1. MONTELUKAST [Suspect]
     Indication: ASTHMA
  2. BUDESONIDE [Concomitant]
     Indication: ASTHMA
     Route: 055

REACTIONS (1)
  - Ecchymosis [Recovered/Resolved]
